FAERS Safety Report 4492002-4 (Version None)
Quarter: 2004Q4

REPORT INFORMATION
  Report Type: 
  Country: None (occurrence: None)
  Receive Date: 20041101
  Receipt Date: 20041020
  Transmission Date: 20050328
  Serious: Yes (Death)
  Sender: FDA-Public Use
  Company Number: 041026-0000456

PATIENT
  Age: 44 Year
  Sex: Male
  Weight: 81.6475 kg

DRUGS (1)
  1. METHAMPHETAMINE HCL [Suspect]
     Dosage: PO
     Route: 048

REACTIONS (6)
  - ACCIDENT [None]
  - CENTRAL NERVOUS SYSTEM STIMULATION [None]
  - DRUG ABUSER [None]
  - INJURY [None]
  - PERFORMANCE STATUS DECREASED [None]
  - POLYTRAUMATISM [None]
